FAERS Safety Report 11918852 (Version 1)
Quarter: 2016Q1

REPORT INFORMATION
  Report Type: Spontaneous
  Country: US (occurrence: US)
  Receive Date: 20160115
  Receipt Date: 20160115
  Transmission Date: 20160526
  Serious: Yes (Hospitalization)
  Sender: FDA-Public Use
  Company Number: US-BEH-2016057615

PATIENT
  Sex: Female
  Weight: 27 kg

DRUGS (7)
  1. ONFI [Concomitant]
     Active Substance: CLOBAZAM
  2. HIZENTRA [Suspect]
     Active Substance: HUMAN IMMUNOGLOBULIN G
     Route: 058
  3. HIZENTRA [Suspect]
     Active Substance: HUMAN IMMUNOGLOBULIN G
     Indication: IMMUNODEFICIENCY
     Route: 058
  4. LIDOCAINE. [Concomitant]
     Active Substance: LIDOCAINE
  5. NASONEX [Concomitant]
     Active Substance: MOMETASONE FUROATE
  6. EPIPEN JR [Concomitant]
     Active Substance: EPINEPHRINE
  7. LAMOTRIGINE. [Concomitant]
     Active Substance: LAMOTRIGINE

REACTIONS (1)
  - Epilepsy [Unknown]
